FAERS Safety Report 5779410-6 (Version None)
Quarter: 2008Q2

REPORT INFORMATION
  Report Type: 
  Country: None (occurrence: None)
  Receive Date: 20080619
  Receipt Date: 20080612
  Transmission Date: 20081010
  Serious: Yes (Hospitalization)
  Sender: FDA-Public Use
  Company Number: US-ABBOTT-08P-163-0457010-00

PATIENT
  Sex: Female
  Weight: 45.4 kg

DRUGS (3)
  1. HUMIRA [Suspect]
     Indication: CROHN'S DISEASE
     Dosage: 160MG, THEN 80MG X1, THEN 40MG QOW
     Route: 058
     Dates: start: 20070101
  2. HUMIRA [Suspect]
     Route: 058
     Dates: start: 20070101
  3. HUMIRA [Suspect]
     Route: 058
     Dates: start: 20070101

REACTIONS (6)
  - ANXIETY [None]
  - COLOSTOMY [None]
  - COLOSTOMY CLOSURE [None]
  - INCISION SITE INFECTION [None]
  - INTESTINAL RESECTION [None]
  - PROCEDURAL PAIN [None]
